FAERS Safety Report 9204354 (Version 1)
Quarter: 2013Q1

REPORT INFORMATION
  Report Type: Spontaneous
  Country: US (occurrence: None)
  Receive Date: 20120709
  Receipt Date: 20120709
  Transmission Date: 20140127
  Serious: No
  Sender: FDA-Public Use
  Company Number: 2012HGS-003418

PATIENT
  Age: 22 Year
  Sex: Female
  Weight: 42.64 kg

DRUGS (6)
  1. BENLYSTA [Suspect]
     Route: 041
  2. PREDNISONE (PREDNISONE) (PREDNISONE) [Concomitant]
  3. LISINOPRIL (LISINOPRIL) (LISINOPRIL) [Concomitant]
  4. METHOTREXATE (METHOTREXATE) (METHOTREXATE) [Concomitant]
  5. LEUCOVORIN (FOLINIC ACID) (FOLINIC ACID) [Suspect]
  6. PLAQUENIL (HYDROCHLOROQUINE) (HYDROCHLOROQUINE) [Concomitant]

REACTIONS (2)
  - Increased appetite [None]
  - Weight increased [None]
